FAERS Safety Report 6490210-4 (Version None)
Quarter: 2009Q4

REPORT INFORMATION
  Report Type: 
  Country: None (occurrence: None)
  Receive Date: 20091211
  Receipt Date: 20091201
  Transmission Date: 20100525
  Serious: Yes (Hospitalization)
  Sender: FDA-Public Use
  Company Number: JP-ASTRAZENECA-2009SE31001

PATIENT
  Age: 14 Year
  Sex: Male

DRUGS (2)
  1. MEROPEN [Suspect]
     Indication: SERRATIA INFECTION
     Route: 042
  2. OTHER DRUGS [Concomitant]

REACTIONS (1)
  - PANCYTOPENIA [None]
